FAERS Safety Report 22839094 (Version 2)
Quarter: 2023Q4

REPORT INFORMATION
  Report Type: Spontaneous
  Country: AU (occurrence: AU)
  Receive Date: 20230818
  Receipt Date: 20231017
  Transmission Date: 20240109
  Serious: Yes (Other)
  Sender: FDA-Public Use
  Company Number: AU-002147023-NVSC2023AU177270

PATIENT

DRUGS (1)
  1. LUCENTIS [Suspect]
     Active Substance: RANIBIZUMAB
     Indication: Retinal vein occlusion
     Dosage: (EYE WAS NOT SPECIFIED) AROUND 6 WEEKS AGO
     Route: 047

REACTIONS (2)
  - Macular fibrosis [Unknown]
  - Blindness [Unknown]

NARRATIVE: CASE EVENT DATE: 20230101
